FAERS Safety Report 16351418 (Version 2)
Quarter: 2019Q2

REPORT INFORMATION
  Report Type: Spontaneous
  Country: US (occurrence: US)
  Receive Date: 20190524
  Receipt Date: 20190614
  Transmission Date: 20190711
  Serious: Yes (Other)
  Sender: FDA-Public Use
  Company Number: US-GLAXOSMITHKLINE-US2019090218

PATIENT
  Age: 64 Year
  Sex: Female

DRUGS (5)
  1. NUCALA [Suspect]
     Active Substance: MEPOLIZUMAB
     Indication: ASTHMA
     Dosage: UNK
     Route: 058
  2. ALBUTEROL. [Concomitant]
     Active Substance: ALBUTEROL
  3. ALLEGRA [Concomitant]
     Active Substance: FEXOFENADINE HYDROCHLORIDE
  4. XOLAIR [Concomitant]
     Active Substance: OMALIZUMAB
  5. SINGULAIR [Concomitant]
     Active Substance: MONTELUKAST SODIUM

REACTIONS (9)
  - Condition aggravated [Unknown]
  - Epistaxis [Unknown]
  - Nasal congestion [Unknown]
  - Malaise [Unknown]
  - Pneumonia [Unknown]
  - Bronchitis [Unknown]
  - Drug ineffective [Unknown]
  - Adverse reaction [Unknown]
  - Headache [Unknown]

NARRATIVE: CASE EVENT DATE: 201902
